FAERS Safety Report 7292778-7 (Version None)
Quarter: 2011Q1

REPORT INFORMATION
  Report Type: 
  Country: None (occurrence: None)
  Receive Date: 20110210
  Receipt Date: 20110210
  Transmission Date: 20110831
  Serious: Yes (Life-Threatening, Hospitalization)
  Sender: FDA-Public Use
  Company Number: None

PATIENT
  Age: 63 Year
  Sex: Female
  Weight: 120.9 kg

DRUGS (2)
  1. SAPHRIS [Suspect]
     Indication: AGITATION
     Dosage: 5 MG Q12 HRS SL
     Route: 060
     Dates: start: 20110119, end: 20110120
  2. SAPHRIS [Suspect]
     Indication: BIPOLAR DISORDER
     Dosage: 5 MG Q12 HRS SL
     Route: 060
     Dates: start: 20110119, end: 20110120

REACTIONS (1)
  - ANGIOEDEMA [None]
